FAERS Safety Report 7073690-5 (Version None)
Quarter: 2010Q4

REPORT INFORMATION
  Report Type: 
  Country: None (occurrence: None)
  Receive Date: 20101029
  Receipt Date: 20100730
  Transmission Date: 20110411
  Serious: No
  Sender: FDA-Public Use
  Company Number: A0873229A

PATIENT
  Age: 72 Year
  Sex: Female

DRUGS (5)
  1. ADVAIR DISKUS 100/50 [Suspect]
     Indication: ASTHMA
     Route: 055
  2. THEOPHYLLINE [Concomitant]
  3. DIGOXIN [Concomitant]
  4. CYCLOBENZAPRINE [Concomitant]
  5. RELAFEN [Concomitant]

REACTIONS (1)
  - LIP BLISTER [None]
